FAERS Safety Report 4563720-4 (Version None)
Quarter: 2005Q1

REPORT INFORMATION
  Report Type: 
  Country: None (occurrence: None)
  Receive Date: 20050121
  Receipt Date: 20050111
  Transmission Date: 20050727
  Serious: Yes (Other)
  Sender: FDA-Public Use
  Company Number: 2004078726

PATIENT
  Age: 80 Year
  Sex: Male
  Weight: 75.2971 kg

DRUGS (4)
  1. VIAGRA [Suspect]
     Indication: ERECTILE DYSFUNCTION
     Dosage: 25 MG (25 MG, AS NECESSARY), ORAL
     Route: 048
  2. GLYBURIDE [Concomitant]
  3. AMLODIPINE BESYLATE [Concomitant]
  4. HYZAAR [Concomitant]

REACTIONS (5)
  - ARTHRALGIA [None]
  - DRUG INEFFECTIVE [None]
  - KNEE ARTHROPLASTY [None]
  - PHARMACEUTICAL PRODUCT COMPLAINT [None]
  - SPINAL COLUMN STENOSIS [None]
